FAERS Safety Report 4475875-0 (Version None)
Quarter: 2004Q4

REPORT INFORMATION
  Report Type: 
  Country: None (occurrence: None)
  Receive Date: 20041012
  Receipt Date: 20040930
  Transmission Date: 20050328
  Serious: Yes (Hospitalization)
  Sender: FDA-Public Use
  Company Number: 2004236367US

PATIENT
  Age: 55 Year
  Sex: Female

DRUGS (8)
  1. DOXORUBICIN PFS (DOXORUBICIN HYDROCHLORIDE) SOLUTION, STERILE [Suspect]
     Indication: DIFFUSE LARGE B-CELL LYMPHOMA
     Dosage: CYCLIC
  2. DELTASONE [Suspect]
     Indication: DIFFUSE LARGE B-CELL LYMPHOMA
     Dosage: CYCLIC
  3. ETOPOSIDE [Suspect]
     Indication: DIFFUSE LARGE B-CELL LYMPHOMA
     Dosage: CYCLIC
  4. ONCOVIN [Suspect]
     Indication: DIFFUSE LARGE B-CELL LYMPHOMA
     Dosage: CYCLIC
  5. IFOSFAMIDE [Suspect]
     Indication: DIFFUSE LARGE B-CELL LYMPHOMA
     Dosage: CYCLIC
  6. CARBOPLATIN [Suspect]
     Indication: DIFFUSE LARGE B-CELL LYMPHOMA
     Dosage: CYCLIC
  7. CYCLOPHOSPHAMIDE [Suspect]
     Indication: DIFFUSE LARGE B-CELL LYMPHOMA
     Dosage: CYCLIC
  8. RITUXIMAB (RITUXIMAB) [Suspect]
     Indication: DIFFUSE LARGE B-CELL LYMPHOMA
     Dosage: CYCLIC

REACTIONS (4)
  - DYSPNOEA [None]
  - HYPOTENSION [None]
  - NEUTROPENIC SEPSIS [None]
  - PANCYTOPENIA [None]
